FAERS Safety Report 7786607-2 (Version None)
Quarter: 2011Q3

REPORT INFORMATION
  Report Type: 
  Country: None (occurrence: None)
  Receive Date: 20110929
  Receipt Date: 20110920
  Transmission Date: 20111222
  Serious: Yes (Death, Other)
  Sender: FDA-Public Use
  Company Number: CA-ELI_LILLY_AND_COMPANY-CA201109005463

PATIENT
  Sex: Female

DRUGS (3)
  1. ZYPREXA [Suspect]
     Indication: SCHIZOPHRENIA
     Dosage: 1 DF, UNK
     Dates: start: 20050601
  2. PAROXETINE HCL [Concomitant]
  3. PROCYCLIDINE HYDROCHLORIDE 2MG TAB [Concomitant]

REACTIONS (6)
  - DIABETIC KETOACIDOSIS [None]
  - UNRESPONSIVE TO STIMULI [None]
  - HEPATIC CIRRHOSIS [None]
  - HEPATITIS C [None]
  - ARTERIOSCLEROSIS [None]
  - DIABETES MELLITUS [None]
